FAERS Safety Report 24317856 (Version 2)
Quarter: 2024Q4

REPORT INFORMATION
  Report Type: Report from Study
  Country: US (occurrence: US)
  Receive Date: 20240913
  Receipt Date: 20241002
  Transmission Date: 20250115
  Serious: Yes (Hospitalization, Other)
  Sender: AIMMUNE
  Company Number: US-AIMMUNE THERAPEUTICS, INC.-2024AIMT01244

PATIENT

DRUGS (25)
  1. VOWST [Suspect]
     Active Substance: DONOR HUMAN STOOL SPORES (ETHANOL TREATED)
     Indication: Clostridium difficile infection
     Dosage: 4 CAPSULES, 1X/DAY
     Route: 048
     Dates: start: 20240811, end: 20240813
  2. VOWST [Suspect]
     Active Substance: DONOR HUMAN STOOL SPORES (ETHANOL TREATED)
     Dosage: 4 CAPSULES, ONCE, LAST DOSE PRIOR TO EVENTS
     Route: 048
     Dates: start: 20240811, end: 20240811
  3. VOWST [Suspect]
     Active Substance: DONOR HUMAN STOOL SPORES (ETHANOL TREATED)
     Dosage: 4 CAPSULES, ONCE, LAST DOSE PRIOR TO HOSPITALIZATION
     Route: 048
     Dates: start: 20240813, end: 20240813
  4. VENTOLIN HFA [Concomitant]
     Active Substance: ALBUTEROL SULFATE
     Indication: Wheezing
     Dosage: 2 PUFFS BY MOUTH EVERY 4 HOURS AS NEEDED
     Dates: start: 20231203
  5. VENTOLIN HFA [Concomitant]
     Active Substance: ALBUTEROL SULFATE
     Indication: Dyspnoea
  6. XANAX [Concomitant]
     Active Substance: ALPRAZOLAM
     Indication: Anxiety
     Dosage: 1 TABLET BY MOUTH TWICE DAILY AS NEEDED
     Route: 048
     Dates: start: 20240723
  7. XANAX [Concomitant]
     Active Substance: ALPRAZOLAM
     Indication: Restlessness
  8. ELIQUIS [Concomitant]
     Active Substance: APIXABAN
     Indication: Product used for unknown indication
     Dosage: ONE TABLET BY MOUTH TWICE DAILY
     Route: 048
     Dates: start: 20240213
  9. AZELASTINE [Concomitant]
     Active Substance: AZELASTINE
     Indication: Hypersensitivity
     Dosage: 137 MCG/SPRAY NASAL SOLN TWICE DAILY TO BOTH NOSTILS
     Dates: start: 20231121
  10. LIPITOR [Concomitant]
     Active Substance: ATORVASTATIN CALCIUM
     Indication: Product used for unknown indication
     Dosage: 80 MG ONE TABLET ONCE DAILY BY MOUTH
     Route: 048
     Dates: start: 20240326
  11. FIORICET [Concomitant]
     Active Substance: ACETAMINOPHEN\BUTALBITAL\CAFFEINE
     Indication: Product used for unknown indication
     Dosage: 50 MG/300MG/40MG CAP, TWICE DAILY, AS NEEDED
     Route: 048
     Dates: start: 20240214, end: 20240907
  12. LANOXIN [Concomitant]
     Active Substance: DIGOXIN
     Indication: Product used for unknown indication
     Dosage: 0.125 MG TAB 1X/DAY
     Route: 048
     Dates: start: 20240214
  13. ALLEGRA ALLERGY [Concomitant]
     Active Substance: FEXOFENADINE HYDROCHLORIDE
     Indication: Hypersensitivity
     Dosage: 180 MG TAB, DAILY, AS NEEDED
     Route: 048
     Dates: start: 20201230
  14. ADVAIR HFA [Concomitant]
     Active Substance: FLUTICASONE PROPIONATE\SALMETEROL XINAFOATE
     Indication: Inhalation therapy
     Dosage: 500MCG/50MCG, ONE PUFF 2X/DAY, RINSE MOUTH AFTER EVERY USE
     Route: 048
  15. LASIX [Concomitant]
     Active Substance: FUROSEMIDE
     Indication: Product used for unknown indication
     Dosage: 1 TAB BY MOUTH EVERY MORNING
     Dates: start: 20240326
  16. DUONEB [Concomitant]
     Active Substance: ALBUTEROL SULFATE\IPRATROPIUM BROMIDE
     Indication: Product used for unknown indication
     Dosage: INHALE1 VIAL VIA NEBULIZER TWICE DAILY
     Dates: start: 20240727
  17. NIZORAL [Concomitant]
     Active Substance: KETOCONAZOLE
     Indication: Product used for unknown indication
     Dosage: 2% CREAM 2X/DAY AS NEEDED ON AFFECTED AREA
     Route: 061
     Dates: start: 20231121, end: 20240907
  18. TOPROL XL [Concomitant]
     Active Substance: METOPROLOL SUCCINATE
     Indication: Product used for unknown indication
     Dosage: ONE TAB TWICE DAILY
     Route: 048
     Dates: start: 20240829, end: 20240916
  19. ELOCON [Concomitant]
     Active Substance: MOMETASONE FUROATE
     Indication: Product used for unknown indication
     Dosage: TWICE DAILY, AS NEEDED, APPLIED TO AFFECTED AREA
     Route: 061
     Dates: start: 20230501
  20. NITROSTAT [Concomitant]
     Active Substance: NITROGLYCERIN
     Indication: Chest pain
     Dosage: 0.4 MG SL TAB, 1 TAB UNDER THE TONGUE EVERY 5 MIN AS NEEDED
     Route: 060
     Dates: start: 20230503, end: 20240911
  21. MIRALAX [Concomitant]
     Active Substance: POLYETHYLENE GLYCOL 3350
     Indication: Constipation
     Dosage: 1-2 CAPSULES AS NEEDED
     Route: 048
     Dates: start: 20230802
  22. ENTRESTO [Concomitant]
     Active Substance: SACUBITRIL\VALSARTAN
     Indication: Heart failure with reduced ejection fraction
     Dosage: 24MG/26MG, ONE TAB 1X/DAY
     Route: 048
     Dates: start: 20240908
  23. ENTRESTO [Concomitant]
     Active Substance: SACUBITRIL\VALSARTAN
     Indication: Atrial fibrillation
  24. ECOTRIN [Concomitant]
     Active Substance: ASPIRIN
     Indication: Heart failure with reduced ejection fraction
     Dosage: 81MG TAB 1X/DAY
     Route: 048
     Dates: start: 20240908
  25. BRILINTA [Concomitant]
     Active Substance: TICAGRELOR
     Indication: Heart failure with reduced ejection fraction
     Dosage: 90MG TAB 2X/DAY
     Route: 048
     Dates: start: 20240908

REACTIONS (16)
  - Acute myocardial infarction [Recovered/Resolved]
  - Acute myocardial infarction [Recovered/Resolved]
  - Cardiogenic shock [Recovered/Resolved]
  - Atrial fibrillation [Recovered/Resolved]
  - Electrocardiogram ST segment depression [Recovered/Resolved]
  - Clostridium difficile colitis [Not Recovered/Not Resolved]
  - Troponin increased [Recovered/Resolved]
  - Chest pain [Recovered/Resolved]
  - Product label issue [Unknown]
  - Troponin increased [Recovered/Resolved]
  - Chest pain [Recovered/Resolved]
  - Cystitis [Not Recovered/Not Resolved]
  - Clostridium test positive [Not Recovered/Not Resolved]
  - Abdominal pain upper [Recovering/Resolving]
  - Abdominal discomfort [Unknown]
  - Diarrhoea [Not Recovered/Not Resolved]

NARRATIVE: CASE EVENT DATE: 20240811
